FAERS Safety Report 11275294 (Version 2)
Quarter: 2015Q3

REPORT INFORMATION
  Report Type: Spontaneous
  Country: US (occurrence: None)
  Receive Date: 20150714
  Receipt Date: 20150818
  Transmission Date: 20151125
  Serious: Yes (Death)
  Sender: FDA-Public Use
  Company Number: INS201507-000288

PATIENT
  Age: 65 Year
  Sex: Female
  Weight: 70.76 kg

DRUGS (8)
  1. LEXAPRO (ESCITALOPRAM) [Concomitant]
  2. ATIVAN [Concomitant]
     Active Substance: LORAZEPAM
  3. DIOVAN [Concomitant]
     Active Substance: VALSARTAN
  4. SUBSYS [Suspect]
     Active Substance: FENTANYL
     Indication: BREAKTHROUGH PAIN
     Dosage: (200 MCG,120 UNITS)
     Dates: start: 20150504
  5. ATENOLOL. [Concomitant]
     Active Substance: ATENOLOL
  6. ZOFRAN [Concomitant]
     Active Substance: ONDANSETRON HYDROCHLORIDE
  7. OMEPRAZOLE. [Concomitant]
     Active Substance: OMEPRAZOLE
  8. LEVOTHYROXINE. [Concomitant]
     Active Substance: LEVOTHYROXINE

REACTIONS (3)
  - Pancreatic carcinoma [None]
  - Death [None]
  - Malignant neoplasm progression [None]

NARRATIVE: CASE EVENT DATE: 20150528
